FAERS Safety Report 5659408-9 (Version None)
Quarter: 2008Q1

REPORT INFORMATION
  Report Type: 
  Country: None (occurrence: None)
  Receive Date: 20080311
  Receipt Date: 20080227
  Transmission Date: 20080703
  Serious: Yes (Other)
  Sender: FDA-Public Use
  Company Number: GB-RANBAXY-2008RR-13385

PATIENT

DRUGS (6)
  1. LISINOPRIL [Suspect]
     Indication: BLOOD PRESSURE
     Dosage: 10 MG, UNK
  2. DISPERSIBLE ASPIRIN 75MG TABLETS BP [Concomitant]
  3. METFORMIN 500MG TABLETS [Concomitant]
  4. PIOGLITAZONE [Concomitant]
  5. ATORVASTATIN CALCIUM [Concomitant]
  6. VARDENAFIL [Concomitant]

REACTIONS (1)
  - DRUG INEFFECTIVE [None]
